FAERS Safety Report 7423421-1 (Version None)
Quarter: 2011Q2

REPORT INFORMATION
  Report Type: 
  Country: None (occurrence: None)
  Receive Date: 20110419
  Receipt Date: 20110407
  Transmission Date: 20111010
  Serious: Yes (Hospitalization, Other)
  Sender: FDA-Public Use
  Company Number: PHHY2011CA27338

PATIENT
  Sex: Female

DRUGS (6)
  1. EXJADE [Suspect]
     Indication: MYELODYSPLASTIC SYNDROME TRANSFORMATION
     Dosage: 1500 MG, DAILY
     Route: 048
     Dates: start: 20090529, end: 20110302
  2. WATER PILLS [Concomitant]
  3. MICARDIS [Concomitant]
  4. FENTANYL [Concomitant]
     Dosage: 25 MG, EVERY TWO DAYS
  5. ACETAMINOPHEN [Concomitant]
  6. EXJADE [Suspect]
     Indication: IRON OVERLOAD

REACTIONS (15)
  - HEAD INJURY [None]
  - PAIN IN EXTREMITY [None]
  - HYPOTENSION [None]
  - BACK PAIN [None]
  - RECTAL HAEMORRHAGE [None]
  - MOUTH ULCERATION [None]
  - URINARY TRACT INFECTION [None]
  - INTERNATIONAL NORMALISED RATIO INCREASED [None]
  - FALL [None]
  - SPINAL FRACTURE [None]
  - FATIGUE [None]
  - DISORIENTATION [None]
  - RENAL IMPAIRMENT [None]
  - BLOOD CREATININE INCREASED [None]
  - NAUSEA [None]
